FAERS Safety Report 15388489 (Version 1)
Quarter: 2018Q3

REPORT INFORMATION
  Report Type: Spontaneous
  Country: HU (occurrence: HU)
  Receive Date: 20180915
  Receipt Date: 20180915
  Transmission Date: 20181010
  Serious: Yes (Other)
  Sender: FDA-Public Use
  Company Number: PHHY2018HU098203

PATIENT

DRUGS (1)
  1. ACLASTA [Suspect]
     Active Substance: ZOLEDRONIC ACID
     Indication: PRODUCT USED FOR UNKNOWN INDICATION
     Route: 065

REACTIONS (7)
  - Asthma [Unknown]
  - Hypertension [Unknown]
  - Pyrexia [Recovering/Resolving]
  - Cataract [Unknown]
  - Gastrooesophageal reflux disease [Unknown]
  - Arthralgia [Recovering/Resolving]
  - Headache [Recovering/Resolving]
